FAERS Safety Report 19054761 (Version 5)
Quarter: 2021Q2

REPORT INFORMATION
  Report Type: Spontaneous
  Country: BR (occurrence: BR)
  Receive Date: 20210325
  Receipt Date: 20210416
  Transmission Date: 20210717
  Serious: Yes (Hospitalization, Other)
  Sender: FDA-Public Use
  Company Number: BR-JNJFOC-20210331579

PATIENT
  Age: 68 Year
  Sex: Female

DRUGS (7)
  1. XARELTO [Suspect]
     Active Substance: RIVAROXABAN
     Indication: THROMBOSIS
     Dosage: 20 MG, QD
     Route: 048
     Dates: start: 20210315
  2. SINVASTATINA [Concomitant]
     Active Substance: SIMVASTATIN
     Indication: BLOOD CHOLESTEROL ABNORMAL
     Dosage: 2 DF, QD
     Route: 048
  3. WARFARIN SODIUM. [Suspect]
     Active Substance: WARFARIN SODIUM
     Indication: PRODUCT USED FOR UNKNOWN INDICATION
     Dosage: UNK
     Route: 065
     Dates: start: 20210315
  4. PROPRANOLOL [Concomitant]
     Active Substance: PROPRANOLOL HYDROCHLORIDE
     Indication: HYPERTENSION
     Dosage: 1 DF, QD
     Route: 048
     Dates: start: 2013
  5. HIDROCLOROTIAZIDA [Concomitant]
     Active Substance: HYDROCHLOROTHIAZIDE
     Indication: HYPERTENSION
     Dosage: 1 DF, QD
     Route: 048
  6. LOSARTAN POTASSIUM. [Concomitant]
     Active Substance: LOSARTAN POTASSIUM
     Indication: HYPERTENSION
     Dosage: 1 DF, QD
     Route: 048
  7. SINVASTATINA [Concomitant]
     Active Substance: SIMVASTATIN
     Indication: BLOOD CHOLESTEROL ABNORMAL
     Dosage: 2 DF, QD
     Route: 048

REACTIONS (9)
  - Dizziness [Recovered/Resolved]
  - Heart rate increased [Not Recovered/Not Resolved]
  - Cerebrovascular accident [Unknown]
  - Blood pressure decreased [Recovering/Resolving]
  - Pain in extremity [Unknown]
  - Blood pressure decreased [Recovered/Resolved]
  - Constipation [Not Recovered/Not Resolved]
  - Faeces discoloured [Recovered/Resolved]
  - Peripheral swelling [Recovering/Resolving]

NARRATIVE: CASE EVENT DATE: 202103
